FAERS Safety Report 6752408-7 (Version None)
Quarter: 2010Q2

REPORT INFORMATION
  Report Type: 
  Country: None (occurrence: None)
  Receive Date: 20100601
  Receipt Date: 20100601
  Transmission Date: 20101027
  Serious: Yes (Other)
  Sender: FDA-Public Use
  Company Number: None

PATIENT
  Age: 53 Year
  Sex: Female

DRUGS (2)
  1. FENTANYL CITRATE [Suspect]
     Indication: COMPUTERISED TOMOGRAM
     Dosage: 100MG IV
     Route: 042
     Dates: start: 20100416, end: 20100416
  2. FENTANYL CITRATE [Suspect]
     Indication: PAIN
     Dosage: 100MG IV
     Route: 042
     Dates: start: 20100416, end: 20100416

REACTIONS (3)
  - OXYGEN SATURATION DECREASED [None]
  - PALLOR [None]
  - VOMITING [None]
